FAERS Safety Report 20959599 (Version 6)
Quarter: 2024Q2

REPORT INFORMATION
  Report Type: Report from Study
  Country: CA (occurrence: CA)
  Receive Date: 20220614
  Receipt Date: 20240410
  Transmission Date: 20240716
  Serious: Yes (Hospitalization, Other)
  Sender: FDA-Public Use
  Company Number: CA-HLS-202201100

PATIENT
  Age: 19 Year
  Sex: Male

DRUGS (18)
  1. CLOZARIL [Suspect]
     Active Substance: CLOZAPINE
     Indication: Product used for unknown indication
     Route: 048
     Dates: end: 20240118
  2. CLOZARIL [Suspect]
     Active Substance: CLOZAPINE
     Indication: Product used for unknown indication
     Dosage: 50 MG AM AND 125MG HS
     Route: 048
  3. CLOZARIL [Suspect]
     Active Substance: CLOZAPINE
     Indication: Product used for unknown indication
     Dosage: 50MG AM AND 150MG HS
     Route: 048
     Dates: start: 20240313, end: 20240408
  4. CLOZARIL [Suspect]
     Active Substance: CLOZAPINE
     Indication: Product used for unknown indication
     Dosage: AT BEDTIME
     Route: 048
     Dates: start: 20210506
  5. METFORMIN [Concomitant]
     Active Substance: METFORMIN HYDROCHLORIDE
     Indication: Product used for unknown indication
     Dosage: SUPPER
     Route: 048
  6. CLONAZEPAM [Concomitant]
     Active Substance: CLONAZEPAM
     Indication: Product used for unknown indication
     Dosage: 0.5 MG TWICE DAILY
     Route: 048
  7. CLONAZEPAM [Concomitant]
     Active Substance: CLONAZEPAM
     Indication: Product used for unknown indication
     Dosage: 0.5MG QID
     Route: 065
  8. RISPERIDONE [Concomitant]
     Active Substance: RISPERIDONE
     Indication: Product used for unknown indication
     Dosage: AT BEDTIME
     Route: 048
  9. ZOPICLONE [Concomitant]
     Active Substance: ZOPICLONE
     Indication: Product used for unknown indication
     Dosage: BEDTIME
     Route: 065
  10. SERTRALINE [Concomitant]
     Active Substance: SERTRALINE HYDROCHLORIDE
     Indication: Product used for unknown indication
     Dosage: BEDTIME
     Route: 065
  11. PERINDOPRIL [Concomitant]
     Active Substance: PERINDOPRIL
     Indication: Product used for unknown indication
     Dosage: BEDTIME
     Route: 065
  12. INVEGA SUSTENNA [Concomitant]
     Active Substance: PALIPERIDONE PALMITATE
     Indication: Product used for unknown indication
     Route: 065
  13. INVEGA SUSTENNA [Concomitant]
     Active Substance: PALIPERIDONE PALMITATE
     Indication: Product used for unknown indication
     Route: 030
     Dates: start: 20240402
  14. BISOPROLOL [Concomitant]
     Active Substance: BISOPROLOL\BISOPROLOL FUMARATE
     Indication: Product used for unknown indication
     Dosage: BEDTIME
     Route: 065
  15. QUETIAPINE [Concomitant]
     Active Substance: QUETIAPINE
     Indication: Product used for unknown indication
     Dosage: 100 MG HS CHANGED TO PRN (PATIENT HAS NOT BEEN RECEIVING)
     Route: 065
  16. Atvian [Concomitant]
     Indication: Product used for unknown indication
     Dosage: PRNS
     Route: 065
  17. LOXAPINE [Concomitant]
     Active Substance: LOXAPINE
     Indication: Product used for unknown indication
     Route: 065
     Dates: start: 202403
  18. ZUCLOPENTHIXOL ACETATE [Concomitant]
     Active Substance: ZUCLOPENTHIXOL ACETATE
     Indication: Product used for unknown indication
     Dosage: 150MG X2 DOSES (24 HOURS APART)
     Route: 065

REACTIONS (13)
  - Neutrophil count decreased [Unknown]
  - Anxiety [Unknown]
  - Cold sweat [Unknown]
  - Antipsychotic drug level increased [Unknown]
  - C-reactive protein increased [Recovering/Resolving]
  - Troponin increased [Unknown]
  - Dyslipidaemia [Unknown]
  - Ejection fraction abnormal [Unknown]
  - Myocarditis [Unknown]
  - Psychiatric decompensation [Unknown]
  - Cardiomyopathy [Unknown]
  - Hyperhidrosis [Unknown]
  - White blood cell count increased [Unknown]
